FAERS Safety Report 10222380 (Version 2)
Quarter: 2014Q2

REPORT INFORMATION
  Report Type: Spontaneous
  Country: EE (occurrence: EE)
  Receive Date: 20140606
  Receipt Date: 20140617
  Transmission Date: 20141212
  Serious: Yes (Death)
  Sender: FDA-Public Use
  Company Number: EE-B.I. PHARMACEUTICALS,INC./RIDGEFIELD-2014-BI-25209EA

PATIENT
  Sex: Male

DRUGS (5)
  1. PRADAXA [Suspect]
     Indication: ATRIAL FIBRILLATION
     Dosage: 220 MG
     Route: 048
     Dates: start: 20131202, end: 20140603
  2. PROPANORM [Concomitant]
     Indication: ATRIAL FIBRILLATION
     Dosage: 300 MG
     Route: 048
     Dates: start: 201208, end: 20140603
  3. PERINDOPRIL ARGININE [Concomitant]
     Indication: HYPERTENSION
     Dosage: DOSE PER APPLICATION: 5/1.25; DAILY DOSE: 5/1.25
     Route: 048
     Dates: start: 201208, end: 20140603
  4. METOPROLOL [Concomitant]
     Indication: HYPERTENSIVE HEART DISEASE
     Dosage: 25 MG
     Route: 048
     Dates: start: 201208, end: 20140603
  5. SPIRIX [Concomitant]
     Indication: PULMONARY OEDEMA
     Dosage: 25 MG
     Route: 048
     Dates: start: 201208, end: 20140603

REACTIONS (1)
  - Cardiac failure [Fatal]
